FAERS Safety Report 11604057 (Version 1)
Quarter: 2015Q4

REPORT INFORMATION
  Report Type: Report from Study
  Country: US (occurrence: US)
  Receive Date: 20151007
  Receipt Date: 20151007
  Transmission Date: 20160304
  Serious: Yes (Hospitalization)
  Sender: FDA-Public Use
  Company Number: US-EISAI MEDICAL RESEARCH-EC-2015-009208

PATIENT
  Age: 73 Year
  Sex: Male
  Weight: 106.1 kg

DRUGS (13)
  1. ALKA SELTZER [Concomitant]
     Active Substance: ANHYDROUS CITRIC ACID\ASPIRIN\SODIUM BICARBONATE
  2. WARFARIN [Concomitant]
     Active Substance: WARFARIN
  3. LISINOPRIL. [Concomitant]
     Active Substance: LISINOPRIL
  4. TUMS [Concomitant]
     Active Substance: CALCIUM CARBONATE
  5. LENVIMA [Suspect]
     Active Substance: LENVATINIB
     Route: 048
     Dates: start: 201509, end: 20150930
  6. TIMOLOL. [Concomitant]
     Active Substance: TIMOLOL
  7. LENVIMA [Suspect]
     Active Substance: LENVATINIB
     Indication: THYROID CANCER
     Route: 048
     Dates: start: 20150616, end: 201509
  8. STOOL SOFTENER [Concomitant]
     Active Substance: DOCUSATE CALCIUM
  9. RANITIDINE [Concomitant]
     Active Substance: RANITIDINE\RANITIDINE HYDROCHLORIDE
  10. ATENOLOL. [Concomitant]
     Active Substance: ATENOLOL
  11. TYLENOL [Concomitant]
     Active Substance: ACETAMINOPHEN
  12. LEVOTHYROXINE. [Concomitant]
     Active Substance: LEVOTHYROXINE
  13. MVI/CENTRUM [Concomitant]

REACTIONS (8)
  - Arthralgia [Unknown]
  - Weight decreased [Unknown]
  - Pain [Unknown]
  - Fatigue [Unknown]
  - Hepatic enzyme increased [Unknown]
  - Transient ischaemic attack [Recovered/Resolved]
  - Hypertension [Unknown]
  - Blood bilirubin increased [Recovered/Resolved]

NARRATIVE: CASE EVENT DATE: 20150622
